FAERS Safety Report 6747916-9 (Version None)
Quarter: 2010Q2

REPORT INFORMATION
  Report Type: 
  Country: None (occurrence: None)
  Receive Date: 20100528
  Receipt Date: 20100517
  Transmission Date: 20101027
  Serious: Yes (Hospitalization, Other)
  Sender: FDA-Public Use
  Company Number: US-ELI_LILLY_AND_COMPANY-US201005004915

PATIENT
  Sex: Female

DRUGS (6)
  1. FORTEO [Suspect]
     Indication: OSTEOPOROSIS
     Dosage: 20 UG, DAILY (1/D)
     Dates: start: 20090401
  2. MS CONTIN [Concomitant]
     Dosage: 15 MG, 2/D
  3. MOBIC [Concomitant]
     Dosage: 7.5 MG, 2/D
  4. VICODIN [Concomitant]
     Indication: PAIN
     Dosage: UNK, AS NEEDED
  5. ZOLOFT [Concomitant]
     Dosage: 50 MG, DAILY (1/D)
  6. PRILOSEC [Concomitant]
     Dosage: 20 MG, DAILY (1/D)

REACTIONS (4)
  - ANKLE FRACTURE [None]
  - CONVULSION [None]
  - LOSS OF CONSCIOUSNESS [None]
  - ROAD TRAFFIC ACCIDENT [None]
